FAERS Safety Report 8493787 (Version 2)
Quarter: 2013Q2

REPORT INFORMATION
  Report Type: Spontaneous
  Country: US (occurrence: US)
  Receive Date: 20120404
  Receipt Date: 20130522
  Transmission Date: 20140414
  Serious: Yes (Other)
  Sender: FDA-Public Use
  Company Number: US-ASTRAZENECA-2010SE06211

PATIENT
  Age: 61 Year
  Sex: Female

DRUGS (1)
  1. ARIMIDEX [Suspect]
     Indication: BREAST CANCER STAGE III
     Route: 048

REACTIONS (5)
  - Loss of consciousness [Unknown]
  - Head injury [Unknown]
  - Heart rate decreased [Unknown]
  - Malaise [Unknown]
  - Hot flush [Unknown]
